FAERS Safety Report 5571277-4 (Version None)
Quarter: 2007Q4

REPORT INFORMATION
  Report Type: 
  Country: None (occurrence: None)
  Receive Date: 20071221
  Receipt Date: 20070615
  Transmission Date: 20080405
  Serious: No
  Sender: FDA-Public Use
  Company Number: A0647692A

PATIENT
  Age: 48 Year
  Sex: Female

DRUGS (3)
  1. FLONASE [Suspect]
     Route: 045
  2. DOXYCYCLINE [Concomitant]
  3. TOPICAL CREAM [Concomitant]
     Indication: ROSACEA

REACTIONS (2)
  - DRUG INEFFECTIVE [None]
  - PHARMACEUTICAL PRODUCT COMPLAINT [None]
